FAERS Safety Report 25886546 (Version 1)
Quarter: 2025Q4

REPORT INFORMATION
  Report Type: Spontaneous
  Country: US (occurrence: US)
  Receive Date: 20251006
  Receipt Date: 20251006
  Transmission Date: 20260117
  Serious: No
  Sender: SANOFI AVENTIS
  Company Number: US-SA-2025SA294222

PATIENT
  Age: 31 Year
  Sex: Female
  Weight: 58.957 kg

DRUGS (1)
  1. REZUROCK [Suspect]
     Active Substance: BELUMOSUDIL
     Indication: Chronic graft versus host disease
     Dosage: 200 MG, QD
     Route: 048
     Dates: start: 2024

REACTIONS (5)
  - Muscle disorder [Unknown]
  - Alopecia [Unknown]
  - Muscle spasms [Unknown]
  - Respiratory syncytial virus infection [Unknown]
  - Asthenia [Unknown]

NARRATIVE: CASE EVENT DATE: 20250101
